FAERS Safety Report 12814422 (Version 1)
Quarter: 2016Q4

REPORT INFORMATION
  Report Type: Spontaneous
  Country: JP (occurrence: JP)
  Receive Date: 20161005
  Receipt Date: 20161005
  Transmission Date: 20170207
  Serious: Yes (Other)
  Sender: FDA-Public Use
  Company Number: JP-009507513-1610JPN000530

PATIENT
  Sex: Female

DRUGS (6)
  1. AMARYL [Concomitant]
     Active Substance: GLIMEPIRIDE
     Dosage: DAILY DOSE UNKNOWN
     Route: 048
  2. SOVALDI [Suspect]
     Active Substance: SOFOSBUVIR
     Dosage: DAILI DOSE UNKNOWN
     Route: 048
     Dates: start: 20160225, end: 2016
  3. SINGULAIR [Concomitant]
     Active Substance: MONTELUKAST SODIUM
     Dosage: DAILY DOSE UNKNOWN
     Route: 048
  4. GLACTIV [Concomitant]
     Active Substance: SITAGLIPTIN
     Dosage: DAILY DOSE UNKNOWN
     Route: 048
  5. REBETOL [Suspect]
     Active Substance: RIBAVIRIN
     Route: 048
  6. METGLUCO [Concomitant]
     Active Substance: METFORMIN HYDROCHLORIDE
     Dosage: DAILY DOSE UNKNOWN
     Route: 048

REACTIONS (1)
  - Hepatitis C [Not Recovered/Not Resolved]

NARRATIVE: CASE EVENT DATE: 201606
